FAERS Safety Report 9312323 (Version 1)
Quarter: 2013Q2

REPORT INFORMATION
  Report Type: Spontaneous
  Country: US (occurrence: US)
  Receive Date: 20130528
  Receipt Date: 20130528
  Transmission Date: 20140414
  Serious: Yes (Death)
  Sender: FDA-Public Use
  Company Number: US-ENDO PHARMACEUTICALS INC.-OPCR20130225

PATIENT
  Age: 40 Year
  Sex: Male

DRUGS (4)
  1. OPANA ER [Suspect]
     Indication: PAIN
     Dosage: 40MG
     Route: 048
  2. OPANA ER [Suspect]
     Dosage: 30MG
     Route: 048
  3. OPANA [Concomitant]
     Indication: BREAKTHROUGH PAIN
     Dosage: 10MG
     Route: 048
  4. HYDROCODONE [Concomitant]
     Indication: PAIN
     Dosage: UNK
     Route: 048

REACTIONS (3)
  - Toxicity to various agents [Fatal]
  - Drug abuse [Fatal]
  - Intentional drug misuse [Fatal]
